FAERS Safety Report 5838709-5 (Version None)
Quarter: 2008Q3

REPORT INFORMATION
  Report Type: 
  Country: None (occurrence: None)
  Receive Date: 20080808
  Receipt Date: 20080804
  Transmission Date: 20090109
  Serious: Yes (Other)
  Sender: FDA-Public Use
  Company Number: B0530458A

PATIENT
  Age: 68 Year
  Sex: Female

DRUGS (2)
  1. ALKERAN [Suspect]
     Indication: DRUG USE FOR UNKNOWN INDICATION
     Dosage: 8MG PER DAY
     Route: 048
  2. PREDONINE [Concomitant]
     Route: 048

REACTIONS (4)
  - ADRENAL INSUFFICIENCY [None]
  - ATRIOVENTRICULAR BLOCK COMPLETE [None]
  - HYPONATRAEMIA [None]
  - VENTRICULAR TACHYCARDIA [None]
